FAERS Safety Report 24581450 (Version 2)
Quarter: 2025Q1

REPORT INFORMATION
  Report Type: Report from Study
  Country: US (occurrence: US)
  Receive Date: 20241105
  Receipt Date: 20250108
  Transmission Date: 20250408
  Serious: Yes (Other)
  Sender: NOVARTIS
  Company Number: US-002147023-NVSC2024US126690

PATIENT
  Age: 39 Year
  Sex: Female

DRUGS (11)
  1. KESIMPTA [Suspect]
     Active Substance: OFATUMUMAB
     Indication: Multiple sclerosis
     Route: 058
     Dates: start: 20240515
  2. KESIMPTA [Suspect]
     Active Substance: OFATUMUMAB
     Route: 065
  3. KESIMPTA [Suspect]
     Active Substance: OFATUMUMAB
     Dosage: 20 MG, QMO
     Route: 058
  4. KESIMPTA [Suspect]
     Active Substance: OFATUMUMAB
     Route: 058
     Dates: start: 20240607
  5. KESIMPTA [Suspect]
     Active Substance: OFATUMUMAB
     Route: 065
     Dates: start: 20241014
  6. VITAMIN D NOS [Concomitant]
     Active Substance: CHOLECALCIFEROL\ERGOCALCIFEROL
     Indication: Product used for unknown indication
     Route: 065
  7. SUMATRIPTAN [Concomitant]
     Active Substance: SUMATRIPTAN
     Indication: Product used for unknown indication
     Route: 065
  8. GABAPENTIN [Concomitant]
     Active Substance: GABAPENTIN
     Indication: Product used for unknown indication
     Route: 065
  9. DULOXETINE HYDROCHLORIDE [Concomitant]
     Active Substance: DULOXETINE HYDROCHLORIDE
     Indication: Product used for unknown indication
     Route: 065
  10. BUSPIRONE HCL [Concomitant]
     Active Substance: BUSPIRONE HYDROCHLORIDE
     Indication: Product used for unknown indication
     Route: 065
  11. ATORVASTATIN CALCIUM [Concomitant]
     Active Substance: ATORVASTATIN CALCIUM
     Indication: Product used for unknown indication
     Route: 065

REACTIONS (26)
  - Blindness unilateral [Unknown]
  - Autoimmune disorder [Unknown]
  - Lupus-like syndrome [Unknown]
  - Choking [Unknown]
  - Panic disorder [Unknown]
  - Colitis ulcerative [Unknown]
  - Rheumatoid arthritis [Unknown]
  - Spinal pain [Unknown]
  - Pain [Unknown]
  - Diarrhoea [Unknown]
  - Influenza [Recovered/Resolved]
  - Weight decreased [Unknown]
  - COVID-19 [Not Recovered/Not Resolved]
  - Malaise [Unknown]
  - Cough [Unknown]
  - Respiratory tract congestion [Unknown]
  - Eye disorder [Not Recovered/Not Resolved]
  - Night blindness [Unknown]
  - Feeling abnormal [Not Recovered/Not Resolved]
  - Memory impairment [Unknown]
  - Bone disorder [Unknown]
  - Bone pain [Unknown]
  - Knee deformity [Unknown]
  - Discomfort [Recovering/Resolving]
  - Balance disorder [Unknown]
  - Dysphonia [Unknown]

NARRATIVE: CASE EVENT DATE: 20240901
